FAERS Safety Report 4953091-3 (Version None)
Quarter: 2006Q1

REPORT INFORMATION
  Report Type: 
  Country: None (occurrence: None)
  Receive Date: 20060324
  Receipt Date: 20060313
  Transmission Date: 20060701
  Serious: Yes (Hospitalization, Other)
  Sender: FDA-Public Use
  Company Number: 2006PK00544

PATIENT
  Sex: Male
  Weight: 286 kg

DRUGS (1)
  1. DISOPRIVAN [Suspect]
     Indication: SEDATIVE THERAPY
     Route: 042

REACTIONS (1)
  - BLOOD CREATINE PHOSPHOKINASE INCREASED [None]
